FAERS Safety Report 9792796 (Version 1)
Quarter: 2014Q1

REPORT INFORMATION
  Report Type: Spontaneous
  Country: US (occurrence: US)
  Receive Date: 20140102
  Receipt Date: 20140102
  Transmission Date: 20141002
  Serious: No
  Sender: FDA-Public Use
  Company Number: US-SA-2013SA112954

PATIENT
  Sex: Female

DRUGS (6)
  1. AUBAGIO [Suspect]
     Indication: MULTIPLE SCLEROSIS
     Route: 065
  2. ASPIRIN ^BAYER^ [Concomitant]
  3. ADVIL [Concomitant]
  4. LYRICA [Concomitant]
  5. CALCIUM [Concomitant]
  6. VITAMIN D3 [Concomitant]

REACTIONS (2)
  - Nausea [Unknown]
  - Diarrhoea [Unknown]
